FAERS Safety Report 11335066 (Version 1)
Quarter: 2015Q3

REPORT INFORMATION
  Report Type: Spontaneous
  Country: US (occurrence: US)
  Receive Date: 20150804
  Receipt Date: 20150804
  Transmission Date: 20151125
  Serious: No
  Sender: FDA-Public Use
  Company Number: US-PFIZER INC-2015256490

PATIENT
  Age: 45 Year
  Sex: Male
  Weight: 63.49 kg

DRUGS (5)
  1. LYRICA [Suspect]
     Active Substance: PREGABALIN
     Indication: NEUROPATHY PERIPHERAL
     Dosage: 75 MG, 4X/DAY
     Route: 048
  2. SOMA [Concomitant]
     Active Substance: CARISOPRODOL
     Indication: MUSCLE SPASMS
  3. SOMA [Concomitant]
     Active Substance: CARISOPRODOL
     Indication: MYALGIA
     Dosage: UNK
  4. NORCO [Concomitant]
     Active Substance: ACETAMINOPHEN\HYDROCODONE BITARTRATE
     Indication: INTERVERTEBRAL DISC DEGENERATION
     Dosage: UNK
  5. SOMA [Concomitant]
     Active Substance: CARISOPRODOL
     Indication: INTERVERTEBRAL DISC DEGENERATION

REACTIONS (1)
  - Activities of daily living impaired [Recovered/Resolved]
